FAERS Safety Report 4988722-5 (Version None)
Quarter: 2006Q2

REPORT INFORMATION
  Report Type: 
  Country: None (occurrence: None)
  Receive Date: 20060502
  Receipt Date: 20050930
  Transmission Date: 20061013
  Serious: Yes (Hospitalization)
  Sender: FDA-Public Use
  Company Number: US-MERCK-0510USA01466

PATIENT
  Age: 53 Year
  Sex: Female
  Weight: 100 kg

DRUGS (10)
  1. VIOXX [Suspect]
     Indication: MONARTHRITIS
     Route: 048
     Dates: start: 19990701, end: 20001101
  2. VIOXX [Suspect]
     Indication: BACK PAIN
     Route: 048
     Dates: start: 19990701, end: 20001101
  3. MICARDIS [Concomitant]
     Route: 065
  4. TENORMIN [Concomitant]
     Route: 065
  5. PREMPRO [Concomitant]
     Route: 065
  6. PRAVACHOL [Concomitant]
     Route: 065
  7. ASPIRIN [Concomitant]
     Route: 065
  8. VITAMIN E [Concomitant]
     Route: 065
  9. ASCORBIC ACID [Concomitant]
     Route: 065
  10. FOLIC ACID [Concomitant]
     Route: 065

REACTIONS (17)
  - ACUTE MYOCARDIAL INFARCTION [None]
  - ANGINA UNSTABLE [None]
  - ARTERIOSCLEROSIS [None]
  - CARDIOVASCULAR DISORDER [None]
  - CEREBROVASCULAR ACCIDENT [None]
  - CONDITION AGGRAVATED [None]
  - CORONARY ARTERY DISEASE [None]
  - CORONARY ARTERY OCCLUSION [None]
  - CORONARY ARTERY STENOSIS [None]
  - DISEASE PROGRESSION [None]
  - HYPERLIPIDAEMIA [None]
  - HYPERTENSION [None]
  - LIVER DISORDER [None]
  - MULTI-ORGAN DISORDER [None]
  - PULMONARY EMBOLISM [None]
  - RENAL DISORDER [None]
  - ROAD TRAFFIC ACCIDENT [None]
